FAERS Safety Report 5273869-9 (Version None)
Quarter: 2007Q1

REPORT INFORMATION
  Report Type: 
  Country: None (occurrence: None)
  Receive Date: 20070323
  Receipt Date: 20070313
  Transmission Date: 20070707
  Serious: Yes (Other)
  Sender: FDA-Public Use
  Company Number: CR-ROCHE-487537

PATIENT
  Age: 55 Year
  Sex: Female

DRUGS (1)
  1. BONVIVA [Suspect]
     Indication: OSTEOPOROSIS
     Dosage: DOSAGE REGIMEN REPORTED AS 1/M.
     Route: 048
     Dates: start: 20060114

REACTIONS (1)
  - CARDIAC DISORDER [None]
